FAERS Safety Report 6064986-4 (Version None)
Quarter: 2009Q1

REPORT INFORMATION
  Report Type: 
  Country: None (occurrence: None)
  Receive Date: 20090204
  Receipt Date: 20090129
  Transmission Date: 20090719
  Serious: Yes (Other)
  Sender: FDA-Public Use
  Company Number: DE-ELI_LILLY_AND_COMPANY-DE200901005412

PATIENT
  Sex: Female

DRUGS (5)
  1. GEMZAR [Suspect]
     Indication: MALIGNANT PERITONEAL NEOPLASM
     Dosage: 1000 MG/M2, WEEKLY, DAYS 1,8,15
     Route: 042
     Dates: start: 20081110, end: 20090112
  2. PLAVIX [Concomitant]
  3. ASPIRIN [Concomitant]
     Dates: start: 20090126
  4. METOHEXAL [Concomitant]
  5. TOREM [Concomitant]

REACTIONS (2)
  - MALIGNANT NEOPLASM PROGRESSION [None]
  - PLATELET COUNT INCREASED [None]
